FAERS Safety Report 13450102 (Version 1)
Quarter: 2017Q2

REPORT INFORMATION
  Report Type: Spontaneous
  Country: US (occurrence: US)
  Receive Date: 20170417
  Receipt Date: 20170417
  Transmission Date: 20170830
  Serious: No
  Sender: FDA-Public Use
  Company Number: US-BION-20160668

PATIENT
  Age: 48 Year
  Sex: Male
  Weight: 76.2 kg

DRUGS (1)
  1. ALEVE [Suspect]
     Active Substance: NAPROXEN SODIUM
     Indication: ANALGESIC THERAPY
     Dosage: 1 DF
     Route: 048
     Dates: start: 20161103

REACTIONS (2)
  - Poor quality drug administered [Unknown]
  - Product leakage [Unknown]

NARRATIVE: CASE EVENT DATE: 20161103
